FAERS Safety Report 8999311 (Version 2)
Quarter: 2013Q3

REPORT INFORMATION
  Report Type: Spontaneous
  Country: US (occurrence: US)
  Receive Date: 20130103
  Receipt Date: 20130801
  Transmission Date: 20140515
  Serious: No
  Sender: FDA-Public Use
  Company Number: US-PFIZER INC-2012327283

PATIENT
  Age: 37 Year
  Sex: Female

DRUGS (8)
  1. EFFEXOR [Suspect]
     Dosage: UNK
  2. GEODON [Suspect]
     Dosage: UNK
  3. LITHIUM CARBONATE [Suspect]
     Dosage: UNK
  4. RISPERDAL [Suspect]
     Dosage: UNK
  5. SEROQUEL [Suspect]
     Dosage: UNK
  6. ABILIFY [Suspect]
     Dosage: UNK
  7. TEGRETOL [Suspect]
     Dosage: UNK
  8. LAMICTAL [Suspect]
     Dosage: UNK

REACTIONS (1)
  - Drug hypersensitivity [Unknown]
